FAERS Safety Report 6544315-X (Version None)
Quarter: 2010Q1

REPORT INFORMATION
  Report Type: 
  Country: None (occurrence: None)
  Receive Date: 20100120
  Receipt Date: 20100120
  Transmission Date: 20100710
  Serious: Yes (Disabling)
  Sender: FDA-Public Use
  Company Number: None

PATIENT
  Age: 56 Year
  Sex: Female
  Weight: 58.9676 kg

DRUGS (2)
  1. CYMBALTA [Suspect]
     Indication: DEPRESSION
     Dosage: 60 MG ONCE DAILY PO
     Route: 048
     Dates: start: 20090720, end: 20100118
  2. CYMBALTA [Suspect]
     Indication: FIBROMYALGIA
     Dosage: 60 MG ONCE DAILY PO
     Route: 048
     Dates: start: 20090720, end: 20100118

REACTIONS (7)
  - HEART RATE INCREASED [None]
  - IRRITABILITY [None]
  - PALPITATIONS [None]
  - PHOTOPSIA [None]
  - PSYCHOMOTOR HYPERACTIVITY [None]
  - VENTRICULAR EXTRASYSTOLES [None]
  - VITREOUS FLOATERS [None]
